FAERS Safety Report 23046114 (Version 2)
Quarter: 2023Q4

REPORT INFORMATION
  Report Type: Spontaneous
  Country: JP (occurrence: JP)
  Receive Date: 20231009
  Receipt Date: 20231012
  Transmission Date: 20240109
  Serious: Yes (Hospitalization)
  Sender: FDA-Public Use
  Company Number: JP-CHUGAI-2023025083

PATIENT
  Age: 84 Year
  Sex: Male
  Weight: 53.3 kg

DRUGS (6)
  1. MIRCERA [Suspect]
     Active Substance: METHOXY POLYETHYLENE GLYCOL-EPOETIN BETA
     Indication: Nephrogenic anaemia
     Dosage: 200 MICROGRAM, ONCE/4WEEKS
     Route: 058
     Dates: start: 20220120, end: 20230629
  2. FEBUXOSTAT [Concomitant]
     Active Substance: FEBUXOSTAT
     Dates: start: 20230708
  3. SPIRONOLACTONE [Concomitant]
     Active Substance: SPIRONOLACTONE
  4. LEVOTHYROXINE [Concomitant]
     Active Substance: LEVOTHYROXINE
     Dates: start: 20230707
  5. FERROUS SULFATE [Concomitant]
     Active Substance: FERROUS SULFATE
     Dates: start: 20210603
  6. LIVACT [ISOLEUCINE;LEUCINE;VALINE] [Concomitant]
     Dosage: GRAIN
     Dates: start: 20220309

REACTIONS (3)
  - Platelet count decreased [Recovering/Resolving]
  - Anaemia [Recovering/Resolving]
  - Haemoglobin decreased [Not Recovered/Not Resolved]

NARRATIVE: CASE EVENT DATE: 20230419
